FAERS Safety Report 11510187 (Version 2)
Quarter: 2015Q4

REPORT INFORMATION
  Report Type: Spontaneous
  Country: US (occurrence: US)
  Receive Date: 20150915
  Receipt Date: 20151013
  Transmission Date: 20160304
  Serious: No
  Sender: FDA-Public Use
  Company Number: US-JNJFOC-20150813096

PATIENT
  Age: 73 Year
  Sex: Female
  Weight: 52.16 kg

DRUGS (4)
  1. TYLENOL 8 HR ARTHRITIS PAIN [Suspect]
     Active Substance: ACETAMINOPHEN
     Indication: PAIN
     Dosage: TOOK 2 CAPLETS ON17-AUG-2015 AND 1 CAPLET ON 18-AUG-2015
     Route: 048
     Dates: start: 20150817
  2. ARICEPT [Concomitant]
     Active Substance: DONEPEZIL HYDROCHLORIDE
     Indication: DEMENTIA
     Route: 065
  3. DIOVAN [Concomitant]
     Active Substance: VALSARTAN
     Indication: HYPERTENSION
     Route: 065
  4. TYLENOL 8 HR ARTHRITIS PAIN [Suspect]
     Active Substance: ACETAMINOPHEN
     Indication: PAIN
     Route: 048
     Dates: start: 20150818

REACTIONS (2)
  - Drug ineffective [Unknown]
  - Underdose [Unknown]

NARRATIVE: CASE EVENT DATE: 20150818
